FAERS Safety Report 23763084 (Version 1)
Quarter: 2024Q2

REPORT INFORMATION
  Report Type: Spontaneous
  Country: DE (occurrence: DE)
  Receive Date: 20240419
  Receipt Date: 20240419
  Transmission Date: 20240716
  Serious: Yes (Other)
  Sender: FDA-Public Use
  Company Number: DE-ANIPHARMA-2024-DE-000043

PATIENT
  Sex: Male

DRUGS (10)
  1. CANDESARTAN CILEXETIL [Suspect]
     Active Substance: CANDESARTAN CILEXETIL
     Indication: Product used for unknown indication
  2. FOLIC ACID [Suspect]
     Active Substance: FOLIC ACID
  3. PROPRANOLOL [Suspect]
     Active Substance: PROPRANOLOL HYDROCHLORIDE
  4. TRAMADOL [Suspect]
     Active Substance: TRAMADOL\TRAMADOL HYDROCHLORIDE
  5. PREDNISOLONE [Suspect]
     Active Substance: PREDNISOLONE
  6. METAMIZOLE [Suspect]
     Active Substance: METAMIZOLE
  7. PANTOPRAZOLE [Suspect]
     Active Substance: PANTOPRAZOLE
  8. OTEZLA [Suspect]
     Active Substance: APREMILAST
  9. PREGABALIN [Suspect]
     Active Substance: PREGABALIN
  10. COLCHICINE [Suspect]
     Active Substance: COLCHICINE

REACTIONS (2)
  - Nausea [Unknown]
  - Vomiting [Unknown]
